FAERS Safety Report 11218683 (Version 1)
Quarter: 2015Q2

REPORT INFORMATION
  Report Type: Spontaneous
  Country: JP (occurrence: JP)
  Receive Date: 20150625
  Receipt Date: 20150625
  Transmission Date: 20150821
  Serious: Yes (Hospitalization)
  Sender: FDA-Public Use
  Company Number: JP-TEVA-571913ISR

PATIENT
  Age: 47 Year
  Sex: Female

DRUGS (2)
  1. ATORVASTATIN [Suspect]
     Active Substance: ATORVASTATIN
     Indication: HYPERLIPIDAEMIA
     Dosage: 5 MILLIGRAM DAILY; 5 MG DAILY; STARTED 2 MONTHS PRIOR
     Route: 065
  2. PREDNISOLONE. [Concomitant]
     Active Substance: PREDNISOLONE
     Indication: SJOGREN^S SYNDROME
     Dosage: .8 MG/KG DAILY; 5 MG / DAY; FOR TREATMENT 0.8 MG/KG/DAY
     Route: 065

REACTIONS (1)
  - Dermatomyositis [Recovering/Resolving]
